FAERS Safety Report 6460561-8 (Version None)
Quarter: 2009Q4

REPORT INFORMATION
  Report Type: 
  Country: None (occurrence: None)
  Receive Date: 20091130
  Receipt Date: 20091123
  Transmission Date: 20100525
  Serious: Yes (Hospitalization, Other)
  Sender: FDA-Public Use
  Company Number: JP-ROXANE LABORATORIES, INC.-2009-RO-01189RO

PATIENT
  Age: 56 Year
  Sex: Male

DRUGS (3)
  1. FUROSEMIDE [Suspect]
     Indication: RENAL FAILURE CHRONIC
  2. PREDNISOLONE [Suspect]
     Indication: PEMPHIGOID
     Dosage: 10 MG
     Route: 048
  3. TACROLIMUS [Concomitant]
     Indication: PEMPHIGOID
     Route: 061

REACTIONS (6)
  - ANTINUCLEAR ANTIBODY POSITIVE [None]
  - BLOOD CREATININE INCREASED [None]
  - BLOOD UREA INCREASED [None]
  - EOSINOPHILIA [None]
  - PEMPHIGOID [None]
  - PHOTOSENSITIVITY REACTION [None]
